FAERS Safety Report 13483590 (Version 1)
Quarter: 2017Q2

REPORT INFORMATION
  Report Type: Spontaneous
  Country: US (occurrence: US)
  Receive Date: 20170425
  Receipt Date: 20170425
  Transmission Date: 20170830
  Serious: Yes (Other)
  Sender: FDA-Public Use
  Company Number: None

PATIENT
  Age: 45 Year
  Sex: Female

DRUGS (1)
  1. LEVALBUTEROL SUNOVION [Suspect]
     Active Substance: LEVALBUTEROL
     Indication: ASTHMA
     Dosage: 45 MCG 2 PUFFS EVERY 4 HR MOUTH/INHALER?
     Route: 048
     Dates: start: 20170418

REACTIONS (3)
  - Cough [None]
  - Wheezing [None]
  - Dyspnoea [None]

NARRATIVE: CASE EVENT DATE: 20120418
